FAERS Safety Report 12791931 (Version 1)
Quarter: 2016Q3

REPORT INFORMATION
  Report Type: Spontaneous
  Country: US (occurrence: US)
  Receive Date: 20160929
  Receipt Date: 20160929
  Transmission Date: 20161109
  Serious: No
  Sender: FDA-Public Use
  Company Number: US-JAZZ-2016-US-011460

PATIENT
  Age: 36 Year
  Sex: Female

DRUGS (38)
  1. TOPROL XL [Concomitant]
     Active Substance: METOPROLOL SUCCINATE
  2. ALREX [Concomitant]
     Active Substance: LOTEPREDNOL ETABONATE
  3. CELEXA [Concomitant]
     Active Substance: CITALOPRAM HYDROBROMIDE
  4. PROVIGIL [Concomitant]
     Active Substance: MODAFINIL
  5. LYRICA [Concomitant]
     Active Substance: PREGABALIN
  6. LEUCOVORIN CALCIUM. [Concomitant]
     Active Substance: LEUCOVORIN CALCIUM
  7. AMBIEN [Concomitant]
     Active Substance: ZOLPIDEM TARTRATE
  8. CYANOCOBALAMIN. [Concomitant]
     Active Substance: CYANOCOBALAMIN
  9. METHOTREXATE. [Concomitant]
     Active Substance: METHOTREXATE
  10. FLONASE [Concomitant]
     Active Substance: FLUTICASONE PROPIONATE
  11. CIPRODEX [Concomitant]
     Active Substance: CIPROFLOXACIN HYDROCHLORIDE\DEXAMETHASONE
  12. VITAMIN C [Concomitant]
     Active Substance: ASCORBIC ACID
  13. SOMA [Concomitant]
     Active Substance: CARISOPRODOL
  14. XYREM [Suspect]
     Active Substance: SODIUM OXYBATE
     Indication: CATAPLEXY
  15. PROAIR HFA [Concomitant]
     Active Substance: ALBUTEROL SULFATE
  16. TOPAMAX [Concomitant]
     Active Substance: TOPIRAMATE
  17. XYREM [Suspect]
     Active Substance: SODIUM OXYBATE
     Indication: NARCOLEPSY
     Dosage: 2.25 G, BID
     Route: 048
     Dates: start: 201606
  18. CHANTIX [Concomitant]
     Active Substance: VARENICLINE TARTRATE
  19. WELCHOL [Concomitant]
     Active Substance: COLESEVELAM HYDROCHLORIDE
  20. CIMZIA [Concomitant]
     Active Substance: CERTOLIZUMAB PEGOL
  21. CYTOMEL [Concomitant]
     Active Substance: LIOTHYRONINE SODIUM
  22. LOVAZA [Concomitant]
     Active Substance: OMEGA-3-ACID ETHYL ESTERS
  23. DDAVP [Concomitant]
     Active Substance: DESMOPRESSIN ACETATE
  24. VITAMIN D3 [Concomitant]
     Active Substance: CHOLECALCIFEROL
  25. ZANAFLEX [Concomitant]
     Active Substance: TIZANIDINE HYDROCHLORIDE
  26. ALLEGRA [Concomitant]
     Active Substance: FEXOFENADINE HYDROCHLORIDE
  27. CORTEF [Concomitant]
     Active Substance: HYDROCORTISONE
  28. SYNTHROID [Concomitant]
     Active Substance: LEVOTHYROXINE SODIUM
  29. OMEPRAZOLE. [Concomitant]
     Active Substance: OMEPRAZOLE
  30. LO LOESTRIN FE [Concomitant]
     Active Substance: ETHINYL ESTRADIOL\NORETHINDRONE ACETATE
  31. QVAR [Concomitant]
     Active Substance: BECLOMETHASONE DIPROPIONATE
  32. FIORICET [Concomitant]
     Active Substance: ACETAMINOPHEN\BUTALBITAL\CAFFEINE
  33. MOBIC [Concomitant]
     Active Substance: MELOXICAM
  34. ASTELIN [Concomitant]
     Active Substance: AZELASTINE HYDROCHLORIDE
  35. SINGULAIR [Concomitant]
     Active Substance: MONTELUKAST SODIUM
  36. SPIRONOLACTONE. [Concomitant]
     Active Substance: SPIRONOLACTONE
  37. INDERAL [Concomitant]
     Active Substance: PROPRANOLOL HYDROCHLORIDE
  38. ARAVA [Concomitant]
     Active Substance: LEFLUNOMIDE

REACTIONS (1)
  - Insomnia [Not Recovered/Not Resolved]

NARRATIVE: CASE EVENT DATE: 201606
